FAERS Safety Report 9618789 (Version 2)
Quarter: 2013Q4

REPORT INFORMATION
  Report Type: Report from Study
  Country: AR (occurrence: AR)
  Receive Date: 20131014
  Receipt Date: 20131018
  Transmission Date: 20140711
  Serious: Yes (Death, Hospitalization, Other)
  Sender: FDA-Public Use
  Company Number: PHHY2013AR114565

PATIENT
  Age: 85 Year
  Sex: Male

DRUGS (1)
  1. DIOVAN [Suspect]
     Indication: HYPERTENSION
     Dosage: 160 MG, QD
     Route: 048
     Dates: start: 2005

REACTIONS (11)
  - Respiratory arrest [Fatal]
  - Ischaemia [Unknown]
  - Ischaemic stroke [Unknown]
  - Parkinson^s disease [Unknown]
  - Gait disturbance [Unknown]
  - Eating disorder [Unknown]
  - Speech disorder [Unknown]
  - Emotional disorder [Unknown]
  - Memory impairment [Unknown]
  - Musculoskeletal stiffness [Unknown]
  - Blood pressure increased [Unknown]
